FAERS Safety Report 9733996 (Version 2)
Quarter: 2014Q1

REPORT INFORMATION
  Report Type: Report from Study
  Country: DE (occurrence: DE)
  Receive Date: 20131205
  Receipt Date: 20140103
  Transmission Date: 20141002
  Serious: Yes (Hospitalization)
  Sender: FDA-Public Use
  Company Number: DE-INCYTE CORPORATION-2013IN002860

PATIENT
  Sex: Female
  Weight: 79 kg

DRUGS (7)
  1. INCB018424 [Suspect]
     Indication: MYELOFIBROSIS
     Dosage: 2 DF, QD (20 MG)
     Route: 048
     Dates: start: 20130821, end: 20130912
  2. INCB018424 [Suspect]
     Dosage: 2 DF, QD (15 MG BID)
     Route: 048
     Dates: start: 20130913
  3. FUROSEMIDE [Concomitant]
  4. MARCUMAR [Concomitant]
  5. DIOVAN [Concomitant]
  6. L-THYROXIN [Concomitant]
  7. BISOPROLOL [Concomitant]

REACTIONS (1)
  - Ophthalmic herpes zoster [Recovered/Resolved]
